FAERS Safety Report 6255721-5 (Version None)
Quarter: 2009Q3

REPORT INFORMATION
  Report Type: 
  Country: None (occurrence: None)
  Receive Date: 20090701
  Receipt Date: 20090623
  Transmission Date: 20100115
  Serious: Yes (Hospitalization)
  Sender: FDA-Public Use
  Company Number: 1000007066

PATIENT
  Age: 85 Year
  Sex: Male

DRUGS (10)
  1. NEBIVOLOL HCL [Suspect]
     Dosage: 5 MG (2.5 MG, 2 IN 1 D), ORAL
     Route: 048
  2. TRIATEC [Suspect]
     Dosage: ORAL
     Route: 048
     Dates: end: 20090512
  3. TRIATEC [Suspect]
  4. KARDEGIC [Suspect]
     Dosage: 160 MG (160 MG, 1 IN 1 D), ORAL
     Route: 048
  5. TAHOR [Suspect]
     Dosage: 10 MG (10MG, 1 IN 1 D), ORAL
     Route: 048
  6. NEXIUM [Suspect]
     Dosage: 20 MG (20 MG, 1 IN 1D), ORAL
     Route: 048
  7. LORAZEPAM [Suspect]
     Dosage: 1 DOSAGE FORMS (1 DOSAGE FORMS, 1 IN 1 D), ORAL
     Route: 048
  8. LASIX [Concomitant]
  9. BUMEX [Concomitant]
  10. KALEORID [Concomitant]

REACTIONS (6)
  - AUTOIMMUNE THROMBOCYTOPENIA [None]
  - BICYTOPENIA [None]
  - HAEMATOMA [None]
  - NEUTROPENIA [None]
  - PANCYTOPENIA [None]
  - RENAL FAILURE ACUTE [None]
